FAERS Safety Report 8764999 (Version 1)
Quarter: 2012Q4

REPORT INFORMATION
  Report Type: 
  Country: AU (occurrence: AU)
  Receive Date: 20120903
  Receipt Date: 20120903
  Transmission Date: 20130627
  Serious: Yes (Hospitalization)
  Sender: FDA-Public Use
  Company Number: AU-009507513-2012SP022488

PATIENT

DRUGS (6)
  1. SAPHRIS [Suspect]
     Indication: BIPOLAR I DISORDER
     Dosage: 10 mg, QD
     Route: 060
     Dates: start: 20120213, end: 20120223
  2. SAPHRIS [Suspect]
     Dosage: 15 mg, QD
     Route: 060
     Dates: start: 20120224, end: 20120420
  3. SAPHRIS [Suspect]
     Dosage: 20 UNK, UNK
     Route: 060
  4. SAPHRIS [Suspect]
     Dosage: UNK
     Dates: start: 20120415, end: 20120515
  5. DESVENLAFAXINE SUCCINATE [Concomitant]
     Dosage: 50 mg, UNK
  6. LITHIUM CARBONATE [Concomitant]
     Dosage: 1800 mg, qd

REACTIONS (3)
  - Delusion [Not Recovered/Not Resolved]
  - Therapeutic product ineffective [Unknown]
  - Inappropriate schedule of drug administration [Unknown]
